FAERS Safety Report 6643980-6 (Version None)
Quarter: 2010Q1

REPORT INFORMATION
  Report Type: 
  Country: None (occurrence: None)
  Receive Date: 20100304
  Receipt Date: 20091019
  Transmission Date: 20100710
  Serious: Yes (Other)
  Sender: FDA-Public Use
  Company Number: 20091019CINRY1202

PATIENT
  Age: 43 Year
  Sex: Female

DRUGS (4)
  1. CINRYZE [Suspect]
     Indication: HEREDITARY ANGIOEDEMA
     Dosage: (1000 UNIT, 2 IN 1 WK), INTRAVENOUS
     Route: 042
     Dates: start: 20091016
  2. CINRYZE [Suspect]
     Indication: PROPHYLAXIS
     Dosage: (1000 UNIT, 2 IN 1 WK), INTRAVENOUS
     Route: 042
     Dates: start: 20091016
  3. ATARAX [Concomitant]
  4. XYZAL [Concomitant]

REACTIONS (3)
  - DRUG INEFFECTIVE [None]
  - HEREDITARY ANGIOEDEMA [None]
  - THERAPEUTIC RESPONSE UNEXPECTED [None]
